FAERS Safety Report 6100567-1 (Version None)
Quarter: 2009Q1

REPORT INFORMATION
  Report Type: 
  Country: None (occurrence: None)
  Receive Date: 20090303
  Receipt Date: 20090218
  Transmission Date: 20090719
  Serious: Yes (Hospitalization)
  Sender: FDA-Public Use
  Company Number: JP-SANOFI-SYNTHELABO-A01200902030

PATIENT
  Sex: Male
  Weight: 47 kg

DRUGS (17)
  1. SCOPOLAMINE BUTYLBROMIDE [Concomitant]
     Indication: ABDOMINAL PAIN
     Dosage: UNK
     Route: 048
     Dates: start: 20090215
  2. AMLODIPINE BESYLATE [Concomitant]
     Indication: HYPERTENSION
     Dosage: 5 MG
     Route: 048
     Dates: start: 20090213, end: 20090214
  3. BEFOTIAMINE_B6_B12 COMBINED DRUG [Concomitant]
     Indication: PALMAR-PLANTAR ERYTHRODYSAESTHESIA SYNDROME
     Dosage: UNK
     Dates: start: 20081104
  4. DEXAMETHASONE [Concomitant]
     Indication: ALLERGY PROPHYLAXIS
     Route: 048
     Dates: start: 20080910
  5. MOSAPRIDE CITRATE [Concomitant]
     Indication: GASTRITIS PROPHYLAXIS
     Route: 048
     Dates: start: 20080826
  6. DAI-KENCHU-TO [Concomitant]
     Indication: GASTRITIS PROPHYLAXIS
     Route: 048
     Dates: start: 20080825
  7. MAGNESIUM OXIDE [Concomitant]
     Indication: CONSTIPATION PROPHYLAXIS
     Route: 048
     Dates: start: 20080825
  8. DEXAMETHASONE SODIUM PHOSPHATE [Concomitant]
     Indication: PREMEDICATION
     Dosage: 4 MG
     Route: 041
     Dates: start: 20080909, end: 20090210
  9. GRANISETRON HYDROCHLORIDE [Concomitant]
     Indication: PREMEDICATION
     Dosage: 3 MG
     Route: 041
     Dates: start: 20080909, end: 20090210
  10. FLUOROURACIL [Suspect]
     Dosage: 580 MG
     Route: 040
     Dates: start: 20090210, end: 20090210
  11. FLUOROURACIL [Suspect]
     Dosage: 3440 MG
     Route: 041
     Dates: start: 20090210, end: 20090211
  12. CALCIUM LEVOFOLINATE [Suspect]
     Dosage: 287 MG
     Route: 041
     Dates: start: 20090210, end: 20090210
  13. ELPLAT [Suspect]
     Indication: LARGE INTESTINE CARCINOMA
     Dosage: 122 MG
     Route: 041
     Dates: start: 20090210, end: 20090210
  14. BETAMETHASONE VALERATE_GENTAMICIN [Concomitant]
     Indication: PALMAR-PLANTAR ERYTHRODYSAESTHESIA SYNDROME
     Dosage: UNK
     Dates: start: 20081104
  15. LOXOPROFEN SODIUM [Concomitant]
     Indication: BACK PAIN
     Dosage: UNK
     Dates: start: 20080828
  16. LOXOPROFEN SODIUM [Concomitant]
     Dosage: UNK
     Route: 048
     Dates: start: 20080904
  17. AZD2171 [Suspect]
     Dosage: UNK
     Route: 048
     Dates: start: 20080909, end: 20090215

REACTIONS (1)
  - DUODENAL PERFORATION [None]
